FAERS Safety Report 23989301 (Version 3)
Quarter: 2025Q1

REPORT INFORMATION
  Report Type: Spontaneous
  Country: BR (occurrence: BR)
  Receive Date: 20240619
  Receipt Date: 20250115
  Transmission Date: 20250409
  Serious: Yes (Other)
  Sender: ABBVIE
  Company Number: BR-ABBOTT-2024A-1382882

PATIENT
  Sex: Female
  Weight: 76 kg

DRUGS (2)
  1. DEPAKOTE [Suspect]
     Active Substance: DIVALPROEX SODIUM
     Indication: Epilepsy
     Route: 048
  2. DIVALPROEX SODIUM [Suspect]
     Active Substance: DIVALPROEX SODIUM
     Indication: Epilepsy
     Route: 048

REACTIONS (11)
  - Head injury [Unknown]
  - Fall [Unknown]
  - Mouth injury [Unknown]
  - Seizure [Unknown]
  - Nasal injury [Unknown]
  - Agitation [Unknown]
  - Stress [Unknown]
  - Product quality issue [Unknown]
  - Abnormal faeces [Unknown]
  - Drug ineffective [Unknown]
  - Vomiting [Unknown]
